FAERS Safety Report 24282508 (Version 1)
Quarter: 2024Q3

REPORT INFORMATION
  Report Type: Spontaneous
  Country: ES (occurrence: ES)
  Receive Date: 20240904
  Receipt Date: 20240904
  Transmission Date: 20241016
  Serious: Yes (Hospitalization)
  Sender: NOVARTIS
  Company Number: None

PATIENT
  Age: 66 Year
  Sex: Female
  Weight: 63.6 kg

DRUGS (3)
  1. MEKINIST [Suspect]
     Active Substance: TRAMETINIB DIMETHYL SULFOXIDE
     Indication: Malignant melanoma
     Dosage: UNK (1 COMPRIMIDO CADA 24 HORAS)
     Route: 048
     Dates: start: 20240104, end: 20240129
  2. TAFINLAR [Suspect]
     Active Substance: DABRAFENIB MESYLATE
     Indication: Malignant melanoma
     Dosage: UNK (2 C?PSULAS CADA 12 HORAS)
     Route: 048
     Dates: start: 20240104, end: 20240129
  3. KEYTRUDA [Suspect]
     Active Substance: PEMBROLIZUMAB
     Indication: Malignant melanoma
     Dosage: 200 MG CADA 21 D?AS (VIAL)
     Route: 042
     Dates: start: 20231027, end: 20231207

REACTIONS (1)
  - Paraparesis [Recovered/Resolved]

NARRATIVE: CASE EVENT DATE: 20240118
